FAERS Safety Report 20020163 (Version 30)
Quarter: 2024Q4

REPORT INFORMATION
  Report Type: Report from Study
  Country: US (occurrence: US)
  Receive Date: 20211101
  Receipt Date: 20241211
  Transmission Date: 20250115
  Serious: Yes (Hospitalization, Other)
  Sender: TAKEDA
  Company Number: US-TAKEDA-2021TUS067402

PATIENT
  Sex: Female

DRUGS (9)
  1. VONICOG ALFA [Suspect]
     Active Substance: VONICOG ALFA
     Indication: Haemorrhage
     Dosage: 2600 INTERNATIONAL UNIT, 1/WEEK
  2. VONICOG ALFA [Suspect]
     Active Substance: VONICOG ALFA
     Dosage: 2600 INTERNATIONAL UNIT, Q2WEEKS
  3. VONICOG ALFA [Suspect]
     Active Substance: VONICOG ALFA
     Dosage: 2600 INTERNATIONAL UNIT
  4. VONICOG ALFA [Suspect]
     Active Substance: VONICOG ALFA
     Dosage: 3000 INTERNATIONAL UNIT, QD
  5. VONICOG ALFA [Suspect]
     Active Substance: VONICOG ALFA
     Dosage: 3000 INTERNATIONAL UNIT
  6. VONICOG ALFA [Suspect]
     Active Substance: VONICOG ALFA
     Dosage: 3000 INTERNATIONAL UNIT
  7. VONICOG ALFA [Suspect]
     Active Substance: VONICOG ALFA
     Dosage: 3000 INTERNATIONAL UNIT
  8. VONICOG ALFA [Suspect]
     Active Substance: VONICOG ALFA
     Dosage: 2740 INTERNATIONAL UNIT, Q2WEEKS
  9. VONICOG ALFA [Suspect]
     Active Substance: VONICOG ALFA
     Dosage: 3000 INTERNATIONAL UNIT, Q2WEEKS

REACTIONS (29)
  - Cardiac arrest [Unknown]
  - Alopecia [Unknown]
  - Seizure [Recovered/Resolved]
  - Blood potassium decreased [Unknown]
  - Gait inability [Unknown]
  - Rectal haemorrhage [Unknown]
  - Epilepsy [Unknown]
  - Generalised tonic-clonic seizure [Unknown]
  - Haemarthrosis [Unknown]
  - Contusion [Unknown]
  - Epistaxis [Recovering/Resolving]
  - Fall [Unknown]
  - Nervous system disorder [Unknown]
  - General physical health deterioration [Unknown]
  - Fatigue [Unknown]
  - Pharyngitis streptococcal [Not Recovered/Not Resolved]
  - Back pain [Not Recovered/Not Resolved]
  - Arthropathy [Unknown]
  - Joint swelling [Unknown]
  - Urinary tract infection [Unknown]
  - Muscular weakness [Unknown]
  - Pain [Unknown]
  - Memory impairment [Unknown]
  - Walking aid user [Unknown]
  - Diarrhoea [Unknown]
  - Arthralgia [Not Recovered/Not Resolved]
  - Vomiting [Unknown]
  - Dizziness [Unknown]
  - Vertigo [Unknown]

NARRATIVE: CASE EVENT DATE: 20210101
